FAERS Safety Report 7504391-4 (Version None)
Quarter: 2011Q2

REPORT INFORMATION
  Report Type: 
  Country: None (occurrence: None)
  Receive Date: 20110525
  Receipt Date: 20110425
  Transmission Date: 20111010
  Serious: Yes (Other)
  Sender: FDA-Public Use
  Company Number: PHHY2011US12617

PATIENT
  Sex: Female

DRUGS (10)
  1. NAPROXEN (ALEVE) [Concomitant]
  2. FISH OIL [Concomitant]
     Dosage: 1000 ML, BID
     Route: 048
  3. RECLAST [Suspect]
     Indication: OSTEOPOROSIS
     Dosage: 5 MG/100 ML PER YEAR
     Route: 042
     Dates: start: 20101213
  4. ADVIL LIQUI-GELS [Concomitant]
  5. STEROIDS NOS [Concomitant]
  6. NAPROXEN [Concomitant]
     Dosage: UNK
  7. CELEBREX [Concomitant]
  8. HYDROCODONE BITARTRATE [Concomitant]
     Dosage: UNK
     Route: 048
  9. BONIVA [Concomitant]
  10. CITALOPRAM HYDROBROMIDE [Concomitant]
     Dosage: 30 MG DAILY
     Route: 048

REACTIONS (26)
  - MUSCLE TWITCHING [None]
  - OEDEMA PERIPHERAL [None]
  - MUSCULAR WEAKNESS [None]
  - PARAESTHESIA [None]
  - HYPOAESTHESIA [None]
  - TENDERNESS [None]
  - RED BLOOD CELL COUNT DECREASED [None]
  - DIZZINESS [None]
  - SWELLING [None]
  - HEADACHE [None]
  - PHLEBITIS [None]
  - INFLAMMATION [None]
  - CONFUSIONAL STATE [None]
  - ASTHENIA [None]
  - THROMBOSIS [None]
  - GLOMERULAR FILTRATION RATE DECREASED [None]
  - VITAMIN D DECREASED [None]
  - ARTHRALGIA [None]
  - BURNING SENSATION [None]
  - STRESS [None]
  - ALANINE AMINOTRANSFERASE DECREASED [None]
  - FATIGUE [None]
  - MALAISE [None]
  - PAIN [None]
  - IRRITABILITY [None]
  - MYALGIA [None]
